FAERS Safety Report 11792817 (Version 1)
Quarter: 2015Q4

REPORT INFORMATION
  Report Type: Spontaneous
  Country: GB (occurrence: None)
  Receive Date: 20151130
  Receipt Date: 20151130
  Transmission Date: 20160305
  Serious: Yes (Congenital Anomaly)
  Sender: FDA-Public Use
  Company Number: 2015RR-106617

PATIENT
  Age: 46 Year
  Sex: Male
  Weight: 89 kg

DRUGS (3)
  1. CARBAMAZEPINE (CARBAMAZEPINE) UNKNOWN [Suspect]
     Active Substance: CARBAMAZEPINE
     Indication: EPILEPSY
     Route: 048
  2. PHENYTOIN (PHENYTOIN) UNKNOWN [Suspect]
     Active Substance: PHENYTOIN
     Indication: EPILEPSY
     Route: 048
  3. VALPROATE DE SODIUM (VALPROIC ACID) UNKNOWN [Suspect]
     Active Substance: VALPROATE SODIUM
     Indication: EPILEPSY
     Route: 048

REACTIONS (1)
  - Hyponatraemia [None]
